FAERS Safety Report 7402616-7 (Version None)
Quarter: 2011Q2

REPORT INFORMATION
  Report Type: 
  Country: None (occurrence: None)
  Receive Date: 20110408
  Receipt Date: 20110404
  Transmission Date: 20111010
  Serious: Yes (Other)
  Sender: FDA-Public Use
  Company Number: US-PFIZER INC-2009314561

PATIENT
  Sex: Male
  Weight: 87.5 kg

DRUGS (4)
  1. PRILOSEC [Concomitant]
     Indication: GASTROOESOPHAGEAL REFLUX DISEASE
     Dosage: 50 MG, 1X/DAY
  2. SUTENT [Suspect]
     Indication: RENAL CELL CARCINOMA
     Dosage: 50 MG, 1X/DAY, 28 DAYS CYCLE AND OFF FOR 14 DAYS
     Route: 048
     Dates: start: 20090401
  3. ADVAIR HFA [Concomitant]
     Dosage: UNK
  4. SPIRIVA [Concomitant]
     Dosage: UNK

REACTIONS (4)
  - LOWER LIMB FRACTURE [None]
  - PNEUMONIA [None]
  - BLOOD PRESSURE INCREASED [None]
  - PALMAR-PLANTAR ERYTHRODYSAESTHESIA SYNDROME [None]
